FAERS Safety Report 26042079 (Version 1)
Quarter: 2025Q4

REPORT INFORMATION
  Report Type: Other
  Country: US (occurrence: US)
  Receive Date: 20251113
  Receipt Date: 20251113
  Transmission Date: 20260118
  Serious: No
  Sender: CHEMI SPA
  Company Number: US-CHEMI SPA-2188461

PATIENT

DRUGS (1)
  1. TEMOZOLOMIDE [Suspect]
     Active Substance: TEMOZOLOMIDE

REACTIONS (2)
  - Developmental delay [Unknown]
  - Foetal exposure timing unspecified [Unknown]
